FAERS Safety Report 6936764-2 (Version None)
Quarter: 2010Q3

REPORT INFORMATION
  Report Type: 
  Country: None (occurrence: None)
  Receive Date: 20100818
  Receipt Date: 20100805
  Transmission Date: 20110219
  Serious: Yes (Hospitalization)
  Sender: FDA-Public Use
  Company Number: 2010P1000727

PATIENT
  Age: 74 Year
  Sex: Female
  Weight: 74.8435 kg

DRUGS (10)
  1. WARFARIN SODIUM [Suspect]
     Indication: STENT PLACEMENT
     Dosage: 5 MG;QD FOR 5 DAYS;PO, 2.5 MG;QD ON TUESDAY AND FRIDAY-PO
     Route: 048
     Dates: start: 20100620
  2. WARFARIN SODIUM [Suspect]
     Indication: THROMBOSIS
     Dosage: 5 MG;QD FOR 5 DAYS;PO, 2.5 MG;QD ON TUESDAY AND FRIDAY-PO
     Route: 048
     Dates: start: 20100620
  3. WARFARIN SODIUM [Suspect]
     Indication: STENT PLACEMENT
     Dosage: 5 MG;QD FOR 5 DAYS;PO, 2.5 MG;QD ON TUESDAY AND FRIDAY-PO
     Route: 048
     Dates: start: 20100620
  4. WARFARIN SODIUM [Suspect]
     Indication: THROMBOSIS
     Dosage: 5 MG;QD FOR 5 DAYS;PO, 2.5 MG;QD ON TUESDAY AND FRIDAY-PO
     Route: 048
     Dates: start: 20100620
  5. CHOLESTYRAMINE ORAL [Concomitant]
  6. SUSPENSION [Concomitant]
  7. SIMVASTATIN [Concomitant]
  8. LEVOTYROXINE [Concomitant]
  9. ALIGN (PROBIOTIC SUPPLEMENT) [Concomitant]
  10. PEPTO BISMOL (BISMUTH SUBSALICYLATE) [Concomitant]

REACTIONS (5)
  - ASTHENIA [None]
  - FEELING COLD [None]
  - INCREASED TENDENCY TO BRUISE [None]
  - INTERNATIONAL NORMALISED RATIO INCREASED [None]
  - LISTLESS [None]
